FAERS Safety Report 26161189 (Version 1)
Quarter: 2025Q4

REPORT INFORMATION
  Report Type: Spontaneous
  Country: US (occurrence: None)
  Receive Date: 20251216
  Receipt Date: 20251216
  Transmission Date: 20260118
  Serious: No
  Sender: ENDO
  Company Number: US-ENDO USA, INC.-2025-002142

PATIENT
  Sex: Male

DRUGS (6)
  1. XIAFLEX [Suspect]
     Active Substance: COLLAGENASE CLOSTRIDIUM HISTOLYTICUM
     Indication: Peyronie^s disease
     Dosage: 0.58 MILLIGRAM, SINGLE (CYCLE 1 INJECTION 2) (1X ON 2 DAYS, 1-3 DAYS APART EVERY 6 WEEKS)
     Dates: start: 2025, end: 2025
  2. XIAFLEX [Suspect]
     Active Substance: COLLAGENASE CLOSTRIDIUM HISTOLYTICUM
     Dosage: 0.58 MILLIGRAM, SINGLE (CYCLE 1 INJECTION 1) (1X ON 2 DAYS, 1-3 DAYS APART EVERY 6 WEEKS)
     Dates: start: 2025, end: 2025
  3. XIAFLEX [Suspect]
     Active Substance: COLLAGENASE CLOSTRIDIUM HISTOLYTICUM
     Dosage: 0.58 MILLIGRAM, SINGLE (CYCLE 2 INJECTION 1) (1X ON 2 DAYS, 1-3 DAYS APART EVERY 6 WEEKS)
     Dates: start: 2025, end: 2025
  4. XIAFLEX [Suspect]
     Active Substance: COLLAGENASE CLOSTRIDIUM HISTOLYTICUM
     Dosage: 0.58 MILLIGRAM, SINGLE (CYCLE 2 INJECTION 2) (1X ON 2 DAYS, 1-3 DAYS APART EVERY 6 WEEKS)
     Dates: start: 2025, end: 2025
  5. XIAFLEX [Suspect]
     Active Substance: COLLAGENASE CLOSTRIDIUM HISTOLYTICUM
     Dosage: 0.58 MILLIGRAM, SINGLE (CYCLE 3 INJECTION 1) (1X ON 2 DAYS, 1-3 DAYS APART EVERY 6 WEEKS)
     Dates: start: 2025, end: 2025
  6. XIAFLEX [Suspect]
     Active Substance: COLLAGENASE CLOSTRIDIUM HISTOLYTICUM
     Dosage: 0.58 MILLIGRAM, SINGLE (CYCLE 3 INJECTION 2) (1X ON 2 DAYS, 1-3 DAYS APART EVERY 6 WEEKS)
     Dates: start: 2025, end: 2025

REACTIONS (3)
  - Pain [Unknown]
  - Sensitive skin [Unknown]
  - Contusion [Unknown]

NARRATIVE: CASE EVENT DATE: 20250101
